FAERS Safety Report 26039659 (Version 2)
Quarter: 2025Q4

REPORT INFORMATION
  Report Type: Spontaneous
  Country: US (occurrence: US)
  Receive Date: 20251113
  Receipt Date: 20251127
  Transmission Date: 20260117
  Serious: Yes (Life-Threatening, Hospitalization, Other)
  Sender: ALKEM
  Company Number: None

PATIENT
  Age: 20 Year
  Sex: Male

DRUGS (2)
  1. QUETIAPINE FUMARATE [Suspect]
     Active Substance: QUETIAPINE FUMARATE
     Indication: Obsessive-compulsive disorder
     Dosage: 100 MILLIGRAM, QD
     Route: 048
  2. CLOMIPRAMINE [Suspect]
     Active Substance: CLOMIPRAMINE
     Indication: Obsessive-compulsive disorder
     Dosage: 25 MILLIGRAM, QD
     Route: 048
     Dates: start: 2022

REACTIONS (3)
  - Serotonin syndrome [Recovered/Resolved]
  - Intentional product use issue [Recovered/Resolved]
  - Treatment noncompliance [Unknown]
